FAERS Safety Report 25032052 (Version 1)
Quarter: 2025Q1

REPORT INFORMATION
  Report Type: Spontaneous
  Country: GB (occurrence: GB)
  Receive Date: 20250303
  Receipt Date: 20250303
  Transmission Date: 20250409
  Serious: Yes (Other)
  Sender: SAMSUNG BIOEPIS
  Company Number: GB-SAMSUNG BIOEPIS-SB-2025-07099

PATIENT
  Age: 60 Year
  Sex: Male

DRUGS (4)
  1. INFLIXIMAB [Suspect]
     Active Substance: INFLIXIMAB
     Indication: Amyotrophic lateral sclerosis
  2. INFLIXIMAB [Suspect]
     Active Substance: INFLIXIMAB
     Indication: Neurosarcoidosis
  3. PREDNISOLONE [Suspect]
     Active Substance: PREDNISOLONE
     Indication: Amyotrophic lateral sclerosis
  4. PREDNISOLONE [Suspect]
     Active Substance: PREDNISOLONE
     Indication: Neurosarcoidosis

REACTIONS (4)
  - Amyotrophic lateral sclerosis [Unknown]
  - Condition aggravated [Unknown]
  - Drug ineffective for unapproved indication [Unknown]
  - Off label use [Unknown]
